FAERS Safety Report 5293054-4 (Version None)
Quarter: 2007Q2

REPORT INFORMATION
  Report Type: 
  Country: None (occurrence: None)
  Receive Date: 20070411
  Receipt Date: 20070330
  Transmission Date: 20071010
  Serious: Yes (Hospitalization, Other)
  Sender: FDA-Public Use
  Company Number: PHMT2007CA00684

PATIENT
  Age: 46 Year
  Sex: Female

DRUGS (6)
  1. CLOZARIL [Suspect]
     Indication: PSYCHOTIC DISORDER
     Dosage: 200 MG
     Route: 048
     Dates: start: 20070110, end: 20070202
  2. RISPERDAL [Suspect]
  3. VALPROIC ACID [Concomitant]
  4. CLONAZEPAM [Concomitant]
  5. PAROXETINE [Concomitant]
  6. BENZTROPINE MESYLATE [Concomitant]

REACTIONS (7)
  - BLOOD CREATINE PHOSPHOKINASE INCREASED [None]
  - CONFUSIONAL STATE [None]
  - DEPRESSED LEVEL OF CONSCIOUSNESS [None]
  - DISORIENTATION [None]
  - MUSCULOSKELETAL STIFFNESS [None]
  - PYREXIA [None]
  - SOMNOLENCE [None]
